FAERS Safety Report 6501457-2 (Version None)
Quarter: 2009Q4

REPORT INFORMATION
  Report Type: 
  Country: None (occurrence: None)
  Receive Date: 20091216
  Receipt Date: 20091211
  Transmission Date: 20100525
  Serious: Yes (Hospitalization, Other)
  Sender: FDA-Public Use
  Company Number: IT-BRISTOL-MYERS SQUIBB COMPANY-14763353

PATIENT
  Age: 81 Year
  Sex: Male

DRUGS (7)
  1. COUMADIN [Suspect]
     Dosage: 1 DF = ACCORDING TO INR VALUES THAT NEED TO BE BETWEEN 2 AND 3
     Dates: start: 20060101
  2. DILATREND [Concomitant]
     Dosage: 1 DF = 1/2 TABS(DILATREND 6,25 )
  3. NEO-LOTAN PLUS [Concomitant]
     Dosage: 1 DF = 1 TAB
  4. NORVASC [Concomitant]
     Dosage: 1 DF = 1 TAB(NORVASC 10 )
  5. CORDARONE [Concomitant]
     Dosage: 1 DF = 1 TAB
  6. MINITRAN [Concomitant]
     Dosage: 1 DF = MINITRAN 10 APPLICATION FROM 8 AM TO 10 PM
  7. MEPRAL [Concomitant]
     Dosage: 1 DF = MEPRAL 20

REACTIONS (2)
  - ATRIAL FLUTTER [None]
  - SKIN EXFOLIATION [None]
